FAERS Safety Report 5926044-6 (Version None)
Quarter: 2008Q4

REPORT INFORMATION
  Report Type: 
  Country: None (occurrence: None)
  Receive Date: 20081021
  Receipt Date: 20081015
  Transmission Date: 20090506
  Serious: Yes (Hospitalization)
  Sender: FDA-Public Use
  Company Number: FR-WYE-G02361908

PATIENT
  Sex: Female

DRUGS (16)
  1. EFFEXOR [Suspect]
     Indication: MAJOR DEPRESSION
     Route: 048
     Dates: start: 20080820, end: 20080910
  2. COTAREG [Suspect]
     Indication: HYPERTENSION
     Route: 048
     Dates: end: 20080910
  3. LASIX [Suspect]
     Indication: HYPERTENSION
     Route: 048
     Dates: end: 20080910
  4. LASIX [Suspect]
     Route: 048
     Dates: start: 20080901
  5. INDOCIN [Concomitant]
     Dosage: 200 MG TOTAL DAILY (SUPPOSITORY FORM)
  6. OXYCONTIN [Concomitant]
     Dosage: 20 MG TOTAL DAILY
     Route: 048
  7. CALCIDOSE [Concomitant]
     Dosage: UNKNOWN
     Route: 048
  8. VITAMIN D [Concomitant]
     Dosage: UNKNOWN
     Route: 048
  9. PROTELOS [Concomitant]
     Route: 048
  10. DOLIPRANE [Concomitant]
     Dosage: 4 G TOTAL DAILY
     Route: 048
  11. CORTANCYL [Concomitant]
     Dosage: 12 G TOTAL DAILY
     Route: 048
  12. ADANCOR [Concomitant]
     Route: 048
  13. AMLOD [Concomitant]
     Route: 048
  14. ZOCOR [Concomitant]
     Dosage: UNKNOWN
     Route: 048
  15. XANAX [Concomitant]
     Dosage: UNKNOWN
     Route: 048
  16. NEXIUM [Suspect]
     Indication: PROPHYLAXIS
     Dosage: 40 MG TOTAL DAILY
     Route: 048
     Dates: end: 20080910

REACTIONS (7)
  - C-REACTIVE PROTEIN INCREASED [None]
  - CARDIAC FAILURE [None]
  - HYPONATRAEMIA [None]
  - INFECTION [None]
  - RENAL FAILURE [None]
  - STAPHYLOCOCCAL SEPSIS [None]
  - URINARY TRACT INFECTION STAPHYLOCOCCAL [None]
